FAERS Safety Report 9899636 (Version 2)
Quarter: 2014Q1

REPORT INFORMATION
  Report Type: Spontaneous
  Country: US (occurrence: US)
  Receive Date: 20140214
  Receipt Date: 20140214
  Transmission Date: 20141002
  Serious: No
  Sender: FDA-Public Use
  Company Number: US-GILEAD-2011-0043239

PATIENT
  Sex: Female

DRUGS (4)
  1. LETAIRIS [Suspect]
     Indication: PRODUCT USED FOR UNKNOWN INDICATION
     Route: 048
     Dates: start: 20110812
  2. REMODULIN [Suspect]
  3. ADCIRCA [Concomitant]
  4. REVATIO [Concomitant]

REACTIONS (4)
  - Unevaluable event [Unknown]
  - Pruritus [Unknown]
  - Urticaria [Unknown]
  - Nausea [Unknown]
